FAERS Safety Report 6691729-3 (Version None)
Quarter: 2010Q2

REPORT INFORMATION
  Report Type: 
  Country: None (occurrence: None)
  Receive Date: 20100422
  Receipt Date: 20090415
  Transmission Date: 20101027
  Serious: No
  Sender: FDA-Public Use
  Company Number: US-ASTRAZENECA-2009UW06181

PATIENT
  Age: 55 Year
  Sex: Female

DRUGS (2)
  1. TOPROL-XL [Suspect]
     Indication: BLOOD PRESSURE ABNORMAL
     Route: 048
  2. TOPROL-XL [Suspect]
     Route: 048

REACTIONS (5)
  - DIZZINESS [None]
  - HYPERTENSION [None]
  - INCORRECT DRUG DOSAGE FORM ADMINISTERED [None]
  - METAMORPHOPSIA [None]
  - VISION BLURRED [None]
